APPROVED DRUG PRODUCT: BISOPROLOL FUMARATE AND HYDROCHLOROTHIAZIDE
Active Ingredient: BISOPROLOL FUMARATE; HYDROCHLOROTHIAZIDE
Strength: 5MG;6.25MG
Dosage Form/Route: TABLET;ORAL
Application: A212678 | Product #002 | TE Code: AB
Applicant: EDENBRIDGE PHARMACEUTICALS LLC
Approved: Jul 9, 2020 | RLD: No | RS: No | Type: RX